FAERS Safety Report 10333552 (Version 2)
Quarter: 2014Q3

REPORT INFORMATION
  Report Type: Spontaneous
  Country: FR (occurrence: FR)
  Receive Date: 20140722
  Receipt Date: 20140801
  Transmission Date: 20150326
  Serious: Yes (Hospitalization)
  Sender: FDA-Public Use
  Company Number: FR-JNJFOC-20140707510

PATIENT
  Age: 66 Year
  Sex: Female

DRUGS (6)
  1. ECONAZOLE [Suspect]
     Active Substance: ECONAZOLE
     Indication: VULVOVAGINAL MYCOTIC INFECTION
     Route: 065
     Dates: start: 20140329
  2. ANTIVITAMIN K [Concomitant]
     Active Substance: WARFARIN
     Route: 065
  3. LOGIFLOX [Suspect]
     Active Substance: LOMEFLOXACIN
     Indication: URINARY TRACT INFECTION
     Route: 048
     Dates: start: 20140326, end: 20140329
  4. COUMADINE [Suspect]
     Active Substance: WARFARIN SODIUM
     Indication: PRODUCT USED FOR UNKNOWN INDICATION
     Route: 048
  5. GYNO-PEVARYL [Suspect]
     Active Substance: ECONAZOLE NITRATE
     Indication: VULVOVAGINAL MYCOTIC INFECTION
     Route: 067
     Dates: start: 20140329, end: 20140403
  6. COUMADINE [Suspect]
     Active Substance: WARFARIN SODIUM
     Indication: PRODUCT USED FOR UNKNOWN INDICATION
     Route: 048
     Dates: start: 20050329

REACTIONS (6)
  - International normalised ratio increased [Recovered/Resolved]
  - Fall [Unknown]
  - Epistaxis [Recovered/Resolved]
  - Haemarthrosis [Recovered/Resolved]
  - Haemoptysis [Recovered/Resolved]
  - Ecchymosis [Unknown]

NARRATIVE: CASE EVENT DATE: 20140330
